FAERS Safety Report 4585377-9 (Version None)
Quarter: 2005Q1

REPORT INFORMATION
  Report Type: 
  Country: None (occurrence: None)
  Receive Date: 20050214
  Receipt Date: 20050131
  Transmission Date: 20050727
  Serious: Yes (Hospitalization)
  Sender: FDA-Public Use
  Company Number: 2005022803

PATIENT
  Sex: Female
  Weight: 90.7194 kg

DRUGS (11)
  1. XANAX [Suspect]
     Indication: DEPRESSION
     Dosage: 6 MG (1 MG, QID/HS INTERVAL; EVERY DAY), ORAL
     Route: 048
     Dates: end: 20041001
  2. VICODIN (HYDORCDONE BITARTRATE, PARACETAMOL) [Concomitant]
  3. PROMETHAZINE HYDROCHLORIDE TAB [Concomitant]
  4. CITALOPRAM HYDROBROMIDE [Concomitant]
  5. VENLAFAXINE HCL [Concomitant]
  6. TRAZODINE (TRAZODONE) [Concomitant]
  7. GABAPENTIN [Concomitant]
  8. IBUPORFEN (IBUPROFEN) [Concomitant]
  9. BUPROPION HYDORCHLORIDE (BUPROPION HYDORCHLORIDE) [Concomitant]
  10. PAROXETINE HYDROCHLRIDE (PAROXETINE HYDROCHLORIDE) [Concomitant]
  11. FLUOXETINE HYDROCHLORIDE [Concomitant]

REACTIONS (17)
  - ACUTE LYMPHOCYTIC LEUKAEMIA [None]
  - DEPENDENCE [None]
  - DISTURBANCE IN ATTENTION [None]
  - DRUG TOLERANCE [None]
  - DRUG WITHDRAWAL SYNDROME [None]
  - FALL [None]
  - HEADACHE [None]
  - INJURY [None]
  - INTENTIONAL MISUSE [None]
  - JOINT INJURY [None]
  - JUDGEMENT IMPAIRED [None]
  - LIMB INJURY [None]
  - MEDICATION ERROR [None]
  - NERVOUS SYSTEM DISORDER [None]
  - PSYCHOMOTOR SKILLS IMPAIRED [None]
  - SPEECH DISORDER [None]
  - THINKING ABNORMAL [None]
